FAERS Safety Report 7020072-8 (Version None)
Quarter: 2010Q3

REPORT INFORMATION
  Report Type: 
  Country: None (occurrence: None)
  Receive Date: 20100929
  Receipt Date: 20100916
  Transmission Date: 20110219
  Serious: Yes (Other)
  Sender: FDA-Public Use
  Company Number: US-ELI_LILLY_AND_COMPANY-US201009005585

PATIENT
  Sex: Female

DRUGS (5)
  1. FORTEO [Suspect]
     Indication: OSTEOPOROSIS
     Dosage: 20 UG, DAILY (1/D)
     Dates: start: 20091210, end: 20100730
  2. CITRACAL [Concomitant]
  3. ANTIHYPERTENSIVES [Concomitant]
  4. VITAMINS [Concomitant]
  5. ANTIOXIDANT /02147801/ [Concomitant]

REACTIONS (5)
  - BONE DISORDER [None]
  - CARDIAC PACEMAKER REPLACEMENT [None]
  - DEVICE DISLOCATION [None]
  - FALL [None]
  - LOWER LIMB FRACTURE [None]
